FAERS Safety Report 18384807 (Version 2)
Quarter: 2020Q4

REPORT INFORMATION
  Report Type: Spontaneous
  Country: US (occurrence: US)
  Receive Date: 20201015
  Receipt Date: 20201028
  Transmission Date: 20210114
  Serious: Yes (Hospitalization)
  Sender: FDA-Public Use
  Company Number: US-MTPC-MTDA2020-0066588

PATIENT
  Sex: Female

DRUGS (1)
  1. RADICAVA [Suspect]
     Active Substance: EDARAVONE
     Indication: AMYOTROPHIC LATERAL SCLEROSIS
     Dosage: 60 MILLIGRAM, QD 10 DAYS OUT OF 14 DAYS, WITH 14 DAYS OFF
     Route: 042
     Dates: start: 20180104

REACTIONS (2)
  - Diabetes mellitus [Recovered/Resolved]
  - Condition aggravated [Unknown]
